FAERS Safety Report 12497107 (Version 1)
Quarter: 2016Q2

REPORT INFORMATION
  Report Type: Spontaneous
  Country: NO (occurrence: NO)
  Receive Date: 20160624
  Receipt Date: 20160624
  Transmission Date: 20160815
  Serious: Yes (Death, Hospitalization, Other)
  Sender: FDA-Public Use
  Company Number: PHHY2016NO086538

PATIENT
  Age: 55 Year
  Sex: Female
  Weight: 52 kg

DRUGS (7)
  1. UVADEX [Suspect]
     Active Substance: METHOXSALEN
     Dosage: UNK
     Route: 065
     Dates: start: 201605, end: 201605
  2. SANDIMMUNE [Suspect]
     Active Substance: CYCLOSPORINE
     Indication: PRODUCT USED FOR UNKNOWN INDICATION
     Route: 065
  3. UVADEX [Suspect]
     Active Substance: METHOXSALEN
     Indication: GRAFT VERSUS HOST DISEASE IN GASTROINTESTINAL TRACT
     Dosage: UNK
     Route: 065
     Dates: start: 20160503, end: 201605
  4. HEPARIN [Concomitant]
     Active Substance: HEPARIN SODIUM
     Indication: PRODUCT USED FOR UNKNOWN INDICATION
     Dosage: 4160 UNITS
     Route: 065
     Dates: start: 20160531, end: 20160531
  5. HEPARIN [Concomitant]
     Active Substance: HEPARIN SODIUM
     Dosage: 4640 UNITS
     Route: 065
     Dates: start: 20160601, end: 20160601
  6. UVADEX [Suspect]
     Active Substance: METHOXSALEN
     Dosage: 223 ML TREATMENT VOLUME, 3.7 ML UVADEX, 19 MIN PA TIME
     Route: 065
     Dates: start: 20160531, end: 20160531
  7. UVADEX [Suspect]
     Active Substance: METHOXSALEN
     Dosage: 208 ML TREATMENT VOLUME, 3.5 ML UVADEX, 22 MIN 10 SEC PA TIME
     Route: 065
     Dates: start: 20160601, end: 20160601

REACTIONS (9)
  - Microangiopathy [Unknown]
  - Traumatic haematoma [Not Recovered/Not Resolved]
  - Blood pressure abnormal [Unknown]
  - Thrombocytopenia [Unknown]
  - Haemoglobin abnormal [Unknown]
  - Fall [Recovered/Resolved]
  - Fatigue [Unknown]
  - Pulmonary embolism [Fatal]
  - Off label use [Recovering/Resolving]

NARRATIVE: CASE EVENT DATE: 201605
